FAERS Safety Report 13199075 (Version 1)
Quarter: 2017Q1

REPORT INFORMATION
  Report Type: Report from Study
  Country: HN (occurrence: HN)
  Receive Date: 20170208
  Receipt Date: 20170208
  Transmission Date: 20170428
  Serious: Yes (Hospitalization)
  Sender: FDA-Public Use
  Company Number: PHHY2017HN018754

PATIENT
  Age: 91 Year
  Sex: Female

DRUGS (1)
  1. CO-DIOVAN [Suspect]
     Active Substance: HYDROCHLOROTHIAZIDE\VALSARTAN
     Indication: PRODUCT USED FOR UNKNOWN INDICATION
     Dosage: (HYDROCHLOROTHIAZIDE 12.5 MG AND VALSARTAN 320 MG),UNK
     Route: 065

REACTIONS (2)
  - Fall [Unknown]
  - Femur fracture [Unknown]
